FAERS Safety Report 18820663 (Version 1)
Quarter: 2021Q1

REPORT INFORMATION
  Report Type: Spontaneous
  Country: US (occurrence: US)
  Receive Date: 20210202
  Receipt Date: 20210202
  Transmission Date: 20210419
  Serious: Yes (Other)
  Sender: FDA-Public Use
  Company Number: US-HIKMA PHARMACEUTICALS USA INC.-US-H14001-21-00503

PATIENT
  Age: 29 Year
  Sex: Female

DRUGS (2)
  1. MILK OF MAGNESIA [Suspect]
     Active Substance: MAGNESIUM HYDROXIDE
     Indication: ABDOMINAL PAIN
     Dosage: UNKNOWN
     Route: 065
  2. MIRALAX [Concomitant]
     Active Substance: POLYETHYLENE GLYCOL 3350
     Indication: ABDOMINAL PAIN
     Dosage: UNKNOWN
     Route: 065

REACTIONS (8)
  - Anuria [Unknown]
  - Renal failure [Recovering/Resolving]
  - Toxicity to various agents [Recovering/Resolving]
  - Urinary retention [Unknown]
  - Hyporeflexia [Unknown]
  - Cardiotoxicity [Recovering/Resolving]
  - Hypermagnesaemia [Recovering/Resolving]
  - Sinus tachycardia [Unknown]
